FAERS Safety Report 5270033-4 (Version None)
Quarter: 2007Q1

REPORT INFORMATION
  Report Type: 
  Country: None (occurrence: None)
  Receive Date: 20061213
  Receipt Date: 20030730
  Transmission Date: 20070707
  Serious: Yes (Other)
  Sender: FDA-Public Use
  Company Number: 2003UW09648

PATIENT
  Age: 62 Year
  Sex: Female
  Weight: 65 kg

DRUGS (15)
  1. IRESSA [Suspect]
  2. PROTONIX [Concomitant]
  3. NORVASC [Concomitant]
  4. BETAPACE [Concomitant]
  5. COUMADIN [Concomitant]
  6. MORPHINE [Concomitant]
  7. GAVITENSIN [Concomitant]
  8. LIDOCAINE [Concomitant]
  9. VISCON [Concomitant]
  10. BENADRYL [Concomitant]
  11. ATACAND [Concomitant]
  12. ZOFRAN [Concomitant]
  13. TYLENOL [Concomitant]
  14. VESTARIL [Concomitant]
  15. TEMAZEPAM [Concomitant]

REACTIONS (1)
  - CYSTITIS HAEMORRHAGIC [None]
